FAERS Safety Report 8834679 (Version 2)
Quarter: 2012Q4

REPORT INFORMATION
  Report Type: 
  Country: IT (occurrence: IT)
  Receive Date: 20121010
  Receipt Date: 20121101
  Transmission Date: 20130627
  Serious: Yes (Hospitalization)
  Sender: FDA-Public Use
  Company Number: IT-ROCHE-1143531

PATIENT
  Age: 60 Year
  Sex: Female

DRUGS (5)
  1. XELODA [Suspect]
     Indication: METASTATIC GASTRIC CANCER
     Route: 048
     Dates: start: 20120629, end: 20120914
  2. CISPLATINO [Suspect]
     Indication: METASTATIC GASTRIC CANCER
     Route: 042
     Dates: start: 20120629, end: 20120914
  3. ALOXI [Concomitant]
     Route: 042
  4. RANIDIL [Concomitant]
     Route: 042
  5. DEXAMETHASONE [Concomitant]
     Dosage: reported as desametasone fosfato
     Route: 042

REACTIONS (3)
  - Diverticulitis [Recovered/Resolved]
  - Anaemia [Recovered/Resolved]
  - Leukopenia [Recovered/Resolved]
